FAERS Safety Report 21733314 (Version 1)
Quarter: 2022Q4

REPORT INFORMATION
  Report Type: Spontaneous
  Country: CA (occurrence: CA)
  Receive Date: 20221215
  Receipt Date: 20221215
  Transmission Date: 20230113
  Serious: Yes (Death)
  Sender: FDA-Public Use
  Company Number: CA-002147023-NVSC2022CA290515

PATIENT

DRUGS (1)
  1. LUTATHERA [Suspect]
     Active Substance: LUTETIUM OXODOTREOTIDE LU-177
     Indication: Product used for unknown indication
     Dosage: RECEIVED SECOND DOSE AND THIRD DOSE WAS CANCELLED WHICH WAS SCHEDULED ON 13 JAN 2023
     Route: 065

REACTIONS (1)
  - Death [Fatal]
